FAERS Safety Report 5045585-X (Version None)
Quarter: 2006Q3

REPORT INFORMATION
  Report Type: 
  Country: None (occurrence: None)
  Receive Date: 20060707
  Receipt Date: 20060626
  Transmission Date: 20061208
  Serious: Yes (Hospitalization)
  Sender: FDA-Public Use
  Company Number: FI-ROCHE-452908

PATIENT
  Age: 37 Year
  Sex: Female

DRUGS (4)
  1. CAPECITABINE [Suspect]
     Indication: BREAST CANCER
     Dosage: GIVEN TWICE DAILY DAYS 1-15 OF EACH 3-WEEK CYCLE. FIRST DOSE ADMINISTERED EVENING OF DAY 1 AND THE +
     Route: 048
     Dates: start: 20060508
  2. DOCETAXEL [Suspect]
     Indication: BREAST CANCER
     Dosage: GIVEN ON DAY 1 OF THREE WEEK CYCLE AS PER PROTOCOL.
     Route: 042
     Dates: start: 20060508
  3. KYTRIL [Concomitant]
     Route: 042
  4. DEXAMETASON [Concomitant]

REACTIONS (6)
  - ANOREXIA [None]
  - BODY TEMPERATURE INCREASED [None]
  - DIARRHOEA [None]
  - ILL-DEFINED DISORDER [None]
  - LETHARGY [None]
  - NAUSEA [None]
